FAERS Safety Report 18031986 (Version 3)
Quarter: 2022Q2

REPORT INFORMATION
  Report Type: Spontaneous
  Country: US (occurrence: US)
  Receive Date: 20200716
  Receipt Date: 20220623
  Transmission Date: 20220721
  Serious: Yes (Hospitalization)
  Sender: FDA-Public Use
  Company Number: US-PFIZER INC-2020270346

PATIENT
  Age: 86 Year
  Sex: Female
  Weight: 56.7 kg

DRUGS (2)
  1. IBRANCE [Suspect]
     Active Substance: PALBOCICLIB
     Indication: Breast cancer female
     Dosage: 100MG TABLET ONCE A DAY BY MOUTH
     Route: 048
     Dates: start: 2018, end: 202006
  2. IBRANCE [Suspect]
     Active Substance: PALBOCICLIB
     Dosage: 100 MG, DAILY
     Route: 048

REACTIONS (3)
  - Lower limb fracture [Recovering/Resolving]
  - Hypoacusis [Unknown]
  - Confusional state [Unknown]

NARRATIVE: CASE EVENT DATE: 20200705
